FAERS Safety Report 10255874 (Version 1)
Quarter: 2014Q2

REPORT INFORMATION
  Report Type: Spontaneous
  Country: US (occurrence: None)
  Receive Date: 20140522
  Receipt Date: 20140522
  Transmission Date: 20141212
  Serious: No
  Sender: FDA-Public Use
  Company Number: 1000053395

PATIENT
  Age: 68 Year
  Sex: Male

DRUGS (8)
  1. TUDORZA PRESSAIR (ACLIDINIUM BROMIDE) (400 MICROGRAM, POWDER) [Suspect]
     Indication: DYSPNOEA
     Route: 055
     Dates: start: 20140129
  2. LEVOTHYROXINE [Concomitant]
  3. BRILINTA (TICAGRELOR) [Concomitant]
  4. LOSARTAN POTASSIUM [Concomitant]
  5. ATORVASTATIN [Concomitant]
  6. METOPROLOL SUCCINATE [Concomitant]
  7. METFORMIN [Concomitant]
  8. JANUVIA (SITAGLIPTIN PHOSPHATE) [Concomitant]

REACTIONS (7)
  - Lacrimation increased [None]
  - Ocular hyperaemia [None]
  - Eye pruritus [None]
  - Sneezing [None]
  - Rhinorrhoea [None]
  - Nasal congestion [None]
  - Off label use [None]
